FAERS Safety Report 6364041-X (Version None)
Quarter: 2009Q3

REPORT INFORMATION
  Report Type: 
  Country: None (occurrence: None)
  Receive Date: 20090919
  Receipt Date: 20090714
  Transmission Date: 20100115
  Serious: No
  Sender: FDA-Public Use
  Company Number: US-ABBOTT-09P-163-0586174-00

PATIENT
  Sex: Male

DRUGS (2)
  1. HUMIRA [Suspect]
     Indication: CROHN'S DISEASE
     Dates: start: 20090709
  2. MEDICATION [Concomitant]
     Indication: MULTIPLE SCLEROSIS
     Route: 050

REACTIONS (2)
  - INJECTION SITE PRURITUS [None]
  - PAINFUL DEFAECATION [None]
